FAERS Safety Report 19590782 (Version 3)
Quarter: 2021Q3

REPORT INFORMATION
  Report Type: Spontaneous
  Country: US (occurrence: US)
  Receive Date: 20210721
  Receipt Date: 20210901
  Transmission Date: 20211014
  Serious: No
  Sender: FDA-Public Use
  Company Number: US-SA-2021SA235595

PATIENT
  Age: 47 Year
  Sex: Female

DRUGS (1)
  1. CABLIVI [Suspect]
     Active Substance: CAPLACIZUMAB-YHDP
     Indication: THROMBOTIC MICROANGIOPATHY
     Dosage: 11 MG, QD
     Route: 058
     Dates: start: 20210707

REACTIONS (2)
  - Platelet count increased [Recovered/Resolved]
  - ADAMTS13 activity decreased [Not Recovered/Not Resolved]

NARRATIVE: CASE EVENT DATE: 20210709
